FAERS Safety Report 6439935-7 (Version None)
Quarter: 2009Q4

REPORT INFORMATION
  Report Type: 
  Country: None (occurrence: None)
  Receive Date: 20091112
  Receipt Date: 20091112
  Transmission Date: 20100525
  Serious: No
  Sender: FDA-Public Use
  Company Number: None

PATIENT
  Sex: Female
  Weight: 112.6 kg

DRUGS (3)
  1. MEMANTINE HCL [Suspect]
     Dosage: 500 MG
  2. CARBOPLATIN [Concomitant]
  3. PACLITAXEL [Concomitant]

REACTIONS (2)
  - BACTERIAL TEST POSITIVE [None]
  - FEBRILE NEUTROPENIA [None]
